FAERS Safety Report 19288029 (Version 11)
Quarter: 2022Q1

REPORT INFORMATION
  Report Type: Report from Study
  Country: US (occurrence: US)
  Receive Date: 20210521
  Receipt Date: 20220111
  Transmission Date: 20220424
  Serious: Yes (Life-Threatening, Hospitalization, Other)
  Sender: FDA-Public Use
  Company Number: US-TAKEDA-US202003620

PATIENT
  Age: 67 Year
  Sex: Male
  Weight: 86.621 kg

DRUGS (26)
  1. PARATHYROID HORMONE [Suspect]
     Active Substance: PARATHYROID HORMONE
     Indication: Hypoparathyroidism
     Dosage: 50 MICROGRAM, QD
     Route: 065
     Dates: start: 20151223, end: 20160129
  2. PARATHYROID HORMONE [Suspect]
     Active Substance: PARATHYROID HORMONE
     Indication: Hypoparathyroidism
     Dosage: 50 MICROGRAM, QD
     Route: 065
     Dates: start: 20151223, end: 20160129
  3. PARATHYROID HORMONE [Suspect]
     Active Substance: PARATHYROID HORMONE
     Indication: Hypoparathyroidism
     Dosage: 50 MICROGRAM, QD
     Route: 065
     Dates: start: 20151223, end: 20160129
  4. PARATHYROID HORMONE [Suspect]
     Active Substance: PARATHYROID HORMONE
     Dosage: 75 MICROGRAM, QD
     Route: 065
     Dates: start: 20160129, end: 20160824
  5. PARATHYROID HORMONE [Suspect]
     Active Substance: PARATHYROID HORMONE
     Dosage: 75 MICROGRAM, QD
     Route: 065
     Dates: start: 20160129, end: 20160824
  6. PARATHYROID HORMONE [Suspect]
     Active Substance: PARATHYROID HORMONE
     Dosage: 75 MICROGRAM, QD
     Route: 065
     Dates: start: 20160129, end: 20160824
  7. PARATHYROID HORMONE [Suspect]
     Active Substance: PARATHYROID HORMONE
     Dosage: 50 MICROGRAM, QD
     Route: 065
     Dates: start: 20160824, end: 20180822
  8. PARATHYROID HORMONE [Suspect]
     Active Substance: PARATHYROID HORMONE
     Dosage: 50 MICROGRAM, QD
     Route: 065
     Dates: start: 20160824, end: 20180822
  9. PARATHYROID HORMONE [Suspect]
     Active Substance: PARATHYROID HORMONE
     Dosage: 50 MICROGRAM, QD
     Route: 065
     Dates: start: 20160824, end: 20180822
  10. PARATHYROID HORMONE [Suspect]
     Active Substance: PARATHYROID HORMONE
     Dosage: 25 MICROGRAM
     Route: 065
     Dates: start: 20180822, end: 201909
  11. PARATHYROID HORMONE [Suspect]
     Active Substance: PARATHYROID HORMONE
     Dosage: 25 MICROGRAM
     Route: 065
     Dates: start: 20180822, end: 201909
  12. PARATHYROID HORMONE [Suspect]
     Active Substance: PARATHYROID HORMONE
     Dosage: 25 MICROGRAM
     Route: 065
     Dates: start: 20180822, end: 201909
  13. ERYTHROMYCIN [Concomitant]
     Active Substance: ERYTHROMYCIN
     Indication: Eyelid disorder
     Dosage: UNK
     Route: 065
     Dates: start: 20120430
  14. ERYTHROMYCIN [Concomitant]
     Active Substance: ERYTHROMYCIN
     Dosage: UNK
     Route: 061
     Dates: start: 20180201
  15. POLYCARBOPHIL [Concomitant]
     Active Substance: POLYCARBOPHIL
     Indication: Crohn^s disease
     Dosage: UNK
     Route: 065
     Dates: start: 20140715
  16. OFLOXACIN [Concomitant]
     Active Substance: OFLOXACIN
     Indication: Eyelid disorder
     Dosage: UNK
     Route: 065
     Dates: start: 20140724
  17. VITAMINS [Concomitant]
     Active Substance: VITAMINS
     Dosage: UNK
     Route: 065
  18. URSODIOL [Concomitant]
     Active Substance: URSODIOL
     Indication: Amnesia
     Dosage: UNK
     Route: 065
     Dates: start: 20150908
  19. LEVOTHYROXINE [Concomitant]
     Active Substance: LEVOTHYROXINE
     Indication: Hypothyroidism
     Dosage: UNK
     Route: 065
     Dates: start: 20160504
  20. MESALAMINE [Concomitant]
     Active Substance: MESALAMINE
     Indication: Crohn^s disease
     Dosage: UNK
     Route: 048
     Dates: start: 20170801
  21. DULOXETINE [Concomitant]
     Active Substance: DULOXETINE
     Indication: Depression
     Dosage: UNK
     Dates: start: 20141203
  22. DULOXETINE [Concomitant]
     Active Substance: DULOXETINE
     Indication: Autoimmune thyroiditis
     Dosage: UNK
     Route: 048
     Dates: start: 20171201
  23. RIVAROXABAN [Concomitant]
     Active Substance: RIVAROXABAN
     Indication: Prophylaxis
     Dosage: UNK
     Route: 048
     Dates: start: 20180615
  24. ACETAMINOPHEN [Concomitant]
     Active Substance: ACETAMINOPHEN
     Dosage: UNK
     Route: 048
     Dates: start: 20181022
  25. LORAZEPAM [Concomitant]
     Active Substance: LORAZEPAM
     Indication: Anxiety
     Dosage: UNK
     Route: 048
     Dates: start: 20190404
  26. ZOSYN [Concomitant]
     Active Substance: PIPERACILLIN SODIUM\TAZOBACTAM SODIUM
     Indication: Infection
     Dosage: UNK
     Route: 042
     Dates: start: 20200118, end: 20200121

REACTIONS (9)
  - Sepsis [Recovered/Resolved]
  - Thrombosis [Recovered/Resolved]
  - Hepatic infection [Recovered/Resolved]
  - Bile duct stone [Recovered/Resolved]
  - Cholangitis [Recovered/Resolved]
  - Kidney infection [Recovering/Resolving]
  - Cholelithiasis [Recovered/Resolved]
  - Bloody discharge [Recovered/Resolved]
  - Cholangitis sclerosing [Recovered/Resolved with Sequelae]

NARRATIVE: CASE EVENT DATE: 20190611
